FAERS Safety Report 4850489-9 (Version None)
Quarter: 2005Q4

REPORT INFORMATION
  Report Type: 
  Country: None (occurrence: None)
  Receive Date: 20051125
  Receipt Date: 20041221
  Transmission Date: 20060501
  Serious: Yes (Other)
  Sender: FDA-Public Use
  Company Number: HQWYE148922DEC04

PATIENT
  Age: 20 Year
  Sex: Female
  Weight: 72.64 kg

DRUGS (2)
  1. PREMARIN [Suspect]
     Indication: EPISTAXIS
     Dosage: A SMALL AMOUNT, EACH NOSTRIL, EVERY DAY   NASAL
     Route: 045
     Dates: start: 20041220, end: 20041201
  2. LEVLEN (ETHINYLESTRADIOL/LEVONORGESTREL) [Concomitant]

REACTIONS (2)
  - EPISTAXIS [None]
  - PRURITUS [None]
